FAERS Safety Report 20103808 (Version 1)
Quarter: 2021Q4

REPORT INFORMATION
  Report Type: Spontaneous
  Country: JP (occurrence: JP)
  Receive Date: 20211123
  Receipt Date: 20211123
  Transmission Date: 20220304
  Serious: Yes (Other)
  Sender: FDA-Public Use
  Company Number: JP-OTSUKA-JP-2012-16693

PATIENT
  Sex: Male

DRUGS (1)
  1. ABILIFY [Suspect]
     Active Substance: ARIPIPRAZOLE
     Indication: Product used for unknown indication
     Dosage: UNK
     Route: 048
     Dates: start: 2009

REACTIONS (4)
  - Mental impairment [Unknown]
  - Eyelid function disorder [Unknown]
  - Thinking abnormal [Unknown]
  - Posture abnormal [Unknown]

NARRATIVE: CASE EVENT DATE: 20100101
